FAERS Safety Report 6490176-7 (Version None)
Quarter: 2009Q4

REPORT INFORMATION
  Report Type: 
  Country: None (occurrence: None)
  Receive Date: 20091211
  Receipt Date: 20091012
  Transmission Date: 20100525
  Serious: No
  Sender: FDA-Public Use
  Company Number: A0811402A

PATIENT
  Age: 53 Year
  Sex: Female

DRUGS (5)
  1. FLONASE [Suspect]
     Dosage: 50MCG PER DAY
     Route: 045
     Dates: start: 20060101, end: 20060101
  2. FLOVENT [Suspect]
     Indication: CHRONIC SINUSITIS
     Route: 045
     Dates: start: 20060101
  3. SINGULAIR [Concomitant]
  4. ADVAIR DISKUS 100/50 [Concomitant]
  5. PRILOSEC [Concomitant]

REACTIONS (3)
  - DRUG INEFFECTIVE [None]
  - INCORRECT ROUTE OF DRUG ADMINISTRATION [None]
  - THERAPEUTIC RESPONSE UNEXPECTED [None]
